FAERS Safety Report 8107547-5 (Version None)
Quarter: 2012Q1

REPORT INFORMATION
  Report Type: 
  Country: None (occurrence: None)
  Receive Date: 20120202
  Receipt Date: 20120127
  Transmission Date: 20120608
  Serious: Yes (Hospitalization)
  Sender: FDA-Public Use
  Company Number: US-BAYER-2012-008934

PATIENT
  Age: 38 Year
  Sex: Female
  Weight: 75.737 kg

DRUGS (8)
  1. DROSPIRENONE AND ETHINYL ESTRADIOL [Suspect]
  2. PAPAYA [Concomitant]
     Indication: GASTROINTESTINAL INJURY
     Dosage: 1, PRN
  3. IRON [Concomitant]
     Dosage: 325 MG, DAILY
     Route: 048
  4. PREVACID [Concomitant]
     Dosage: 300 MG, UNK
     Route: 048
     Dates: start: 20080815
  5. YASMIN [Suspect]
     Indication: ACNE
  6. YAZ [Suspect]
     Indication: ACNE
  7. HISTA-VENT DA [Concomitant]
     Dosage: 1 SPRAY TO EACH NOSTRIL ONCE OR TWICE DAILY, PRN
     Route: 045
  8. K+1 [Concomitant]
     Dosage: UNK UNK, ONCE

REACTIONS (7)
  - OEDEMA PERIPHERAL [None]
  - PULMONARY EMBOLISM [None]
  - DEEP VEIN THROMBOSIS [None]
  - DYSPNOEA [None]
  - PAIN IN EXTREMITY [None]
  - CHEST PAIN [None]
  - INJURY [None]
